FAERS Safety Report 9888746 (Version 1)
Quarter: 2014Q1

REPORT INFORMATION
  Report Type: Spontaneous
  Country: US (occurrence: US)
  Receive Date: 20140211
  Receipt Date: 20140211
  Transmission Date: 20141002
  Serious: No
  Sender: FDA-Public Use
  Company Number: US-TEVA-461884USA

PATIENT
  Sex: Female

DRUGS (1)
  1. PROAIR HFA [Suspect]

REACTIONS (4)
  - Rotator cuff syndrome [Unknown]
  - Pain in extremity [Unknown]
  - Drug ineffective [Unknown]
  - Device malfunction [Unknown]
